FAERS Safety Report 11873454 (Version 2)
Quarter: 2016Q1

REPORT INFORMATION
  Report Type: Report from Study
  Country: BR (occurrence: BR)
  Receive Date: 20151228
  Receipt Date: 20160219
  Transmission Date: 20160526
  Serious: Yes (Other)
  Sender: FDA-Public Use
  Company Number: BR-BRISTOL-MYERS SQUIBB COMPANY-BMS-2015-091200

PATIENT
  Sex: Female

DRUGS (2)
  1. ARAVA [Concomitant]
     Active Substance: LEFLUNOMIDE
     Indication: PRODUCT USED FOR UNKNOWN INDICATION
     Route: 065
  2. ABATACEPT [Suspect]
     Active Substance: ABATACEPT
     Indication: RHEUMATOID ARTHRITIS
     Dosage: 125 MG, UNK
     Route: 058

REACTIONS (7)
  - Joint swelling [Unknown]
  - Abasia [Unknown]
  - Pain in extremity [Unknown]
  - Malaise [Unknown]
  - Pain [Unknown]
  - Peripheral swelling [Unknown]
  - Weight decreased [Unknown]
